FAERS Safety Report 15107103 (Version 5)
Quarter: 2018Q3

REPORT INFORMATION
  Report Type: Spontaneous
  Country: US (occurrence: US)
  Receive Date: 20180704
  Receipt Date: 20180920
  Transmission Date: 20181010
  Serious: No
  Sender: FDA-Public Use
  Company Number: US-PFIZER INC-2018269465

PATIENT
  Age: 71 Year
  Sex: Female

DRUGS (1)
  1. BOSULIF [Suspect]
     Active Substance: BOSUTINIB MONOHYDRATE
     Indication: CHRONIC MYELOID LEUKAEMIA
     Dosage: 200 MG, 1X/DAY (WITH FOOD AND PLENTY OF WATER)
     Route: 048
     Dates: start: 20180628

REACTIONS (4)
  - Myalgia [Unknown]
  - Diarrhoea [Recovered/Resolved]
  - Renal disorder [Recovered/Resolved]
  - Nerve compression [Unknown]

NARRATIVE: CASE EVENT DATE: 2018
